FAERS Safety Report 13796353 (Version 1)
Quarter: 2017Q3

REPORT INFORMATION
  Report Type: Spontaneous
  Country: US (occurrence: US)
  Receive Date: 20170726
  Receipt Date: 20170726
  Transmission Date: 20171127
  Serious: Yes (Other)
  Sender: FDA-Public Use
  Company Number: US-BAUSCH-BL-2017-022447

PATIENT
  Sex: Female

DRUGS (4)
  1. DILAUDID [Concomitant]
     Active Substance: HYDROMORPHONE HYDROCHLORIDE
     Indication: PRODUCT USED FOR UNKNOWN INDICATION
     Dosage: HAS BEEN ON MEDICATION FOR SIX YEARS
     Dates: start: 2011
  2. XIFAXAN [Suspect]
     Active Substance: RIFAXIMIN
     Indication: ENCEPHALOPATHY
     Route: 065
     Dates: start: 201611
  3. MORPHINE [Concomitant]
     Active Substance: MORPHINE
     Indication: PRODUCT USED FOR UNKNOWN INDICATION
     Dosage: HAS BEEN ON MEDICATION FOR SIX YEARS
     Dates: start: 2011
  4. COUMADIN [Concomitant]
     Active Substance: WARFARIN SODIUM
     Indication: PRODUCT USED FOR UNKNOWN INDICATION
     Dates: start: 2015, end: 2017

REACTIONS (12)
  - Liver injury [Unknown]
  - Hepatic mass [Unknown]
  - Hepatic vascular thrombosis [None]
  - Weight decreased [Unknown]
  - Hepatic cirrhosis [Unknown]
  - Off label use [Unknown]
  - Liver disorder [Unknown]
  - Procedural complication [Unknown]
  - Iatrogenic injury [None]
  - Hepatic haemorrhage [None]
  - Dehydration [Unknown]
  - Drug effect decreased [None]

NARRATIVE: CASE EVENT DATE: 2017
